FAERS Safety Report 9938824 (Version 3)
Quarter: 2014Q2

REPORT INFORMATION
  Report Type: Spontaneous
  Country: US (occurrence: US)
  Receive Date: 20140303
  Receipt Date: 20140617
  Transmission Date: 20141212
  Serious: Yes (Other)
  Sender: FDA-Public Use
  Company Number: US-PFIZER INC-2014057068

PATIENT
  Age: 32 Year
  Sex: Male

DRUGS (1)
  1. CHANTIX [Suspect]
     Dosage: STARTER PACK 0.5/1 MG, UNK
     Dates: start: 20070125, end: 20070704

REACTIONS (2)
  - Suicidal ideation [Unknown]
  - Depression [Unknown]
